FAERS Safety Report 11677126 (Version 1)
Quarter: 2015Q4

REPORT INFORMATION
  Report Type: Spontaneous
  Country: US (occurrence: US)
  Receive Date: 20151028
  Receipt Date: 20151028
  Transmission Date: 20160304
  Serious: Yes (Other)
  Sender: FDA-Public Use
  Company Number: US-BAYER-2015-452762

PATIENT
  Age: 31 Year
  Sex: Male
  Weight: 88.44 kg

DRUGS (1)
  1. ALEVE [Suspect]
     Active Substance: NAPROXEN SODIUM
     Indication: ARTHRITIS
     Dosage: 2 DF, QD
     Route: 048
     Dates: start: 201407, end: 201407

REACTIONS (2)
  - Product use issue [None]
  - Cystitis [Recovered/Resolved]

NARRATIVE: CASE EVENT DATE: 201407
